FAERS Safety Report 14231279 (Version 3)
Quarter: 2018Q1

REPORT INFORMATION
  Report Type: Spontaneous
  Country: US (occurrence: US)
  Receive Date: 20171128
  Receipt Date: 20180123
  Transmission Date: 20180508
  Serious: Yes (Hospitalization, Other)
  Sender: FDA-Public Use
  Company Number: US-IMPAX LABORATORIES, INC-2017-IPXL-03326

PATIENT
  Age: 50 Year
  Sex: Female
  Weight: 74.1 kg

DRUGS (3)
  1. ALERTEC [Concomitant]
     Active Substance: MODAFINIL
     Indication: HYPERSENSITIVITY
     Dosage: 1 DF, 1 /DAY
     Route: 065
  2. DEXTROAMPHET SACCHARAT, AMPHET ASPARTATE, DEXTROAMPHET SULFATE AND AMPHET SULFAT [Suspect]
     Active Substance: AMPHETAMINE ASPARTATE\AMPHETAMINE SULFATE\DEXTROAMPHETAMINE SACCHARATE\DEXTROAMPHETAMINE SULFATE
     Indication: ATTENTION DEFICIT/HYPERACTIVITY DISORDER
     Dosage: 20 MG, DAILY, ONE TO THREE CAPSULES
     Route: 048
     Dates: start: 201708, end: 2017
  3. HYDROCHLOROTHIAZIDE. [Suspect]
     Active Substance: HYDROCHLOROTHIAZIDE
     Indication: HYPERTENSION
     Dosage: 25MG TABLETS,UNK
     Route: 065

REACTIONS (4)
  - Seizure [Recovered/Resolved]
  - Product substitution issue [Unknown]
  - Cardiac arrest [Recovered/Resolved]
  - Blood potassium decreased [Recovered/Resolved]

NARRATIVE: CASE EVENT DATE: 20170823
